FAERS Safety Report 5034211-1 (Version None)
Quarter: 2006Q2

REPORT INFORMATION
  Report Type: 
  Country: None (occurrence: None)
  Receive Date: 20060626
  Receipt Date: 20060614
  Transmission Date: 20061013
  Serious: Yes (Life-Threatening, Hospitalization)
  Sender: FDA-Public Use
  Company Number: FR-GLAXOSMITHKLINE-B0427572A

PATIENT
  Age: 21 Year
  Sex: Female

DRUGS (11)
  1. LAMICTAL [Suspect]
     Dosage: 100MG PER DAY
     Route: 048
     Dates: end: 20060315
  2. RISPERDAL [Suspect]
     Dosage: 1MG TWICE PER DAY
     Route: 048
     Dates: end: 20060315
  3. SEROPRAM [Suspect]
     Dosage: 10MG PER DAY
     Route: 048
     Dates: end: 20060315
  4. LOXAPAC [Suspect]
     Dosage: 110MG PER DAY
     Route: 048
     Dates: end: 20060315
  5. ATARAX [Suspect]
     Route: 048
     Dates: end: 20060315
  6. SERESTA [Suspect]
     Dosage: 50MG PER DAY
     Route: 048
     Dates: end: 20060315
  7. CERAZETTE [Concomitant]
     Dosage: 1UNIT PER DAY
     Route: 065
  8. MOTILIUM [Concomitant]
     Dosage: 3UNIT PER DAY
     Route: 065
  9. VALIUM [Concomitant]
     Dosage: 10MG PER DAY
     Route: 065
  10. MEPRONIZINE [Concomitant]
     Dosage: 1UNIT PER DAY
     Route: 065
  11. DUPHALAC [Concomitant]
     Dosage: 5UNIT PER DAY
     Route: 065

REACTIONS (16)
  - ANOREXIA [None]
  - ASTHENIA [None]
  - CARDIOMYOPATHY ACUTE [None]
  - COMA [None]
  - DRUG LEVEL INCREASED [None]
  - EJECTION FRACTION DECREASED [None]
  - ELECTROCARDIOGRAM QRS COMPLEX PROLONGED [None]
  - HAEMODYNAMIC INSTABILITY [None]
  - HEPATITIS ACUTE [None]
  - HEPATOCELLULAR DAMAGE [None]
  - HYPERKALAEMIA [None]
  - HYPONATRAEMIA [None]
  - LACTIC ACIDOSIS [None]
  - MYOCARDITIS [None]
  - PSYCHOMOTOR RETARDATION [None]
  - VENTRICULAR DYSFUNCTION [None]
